FAERS Safety Report 19724719 (Version 1)
Quarter: 2021Q3

REPORT INFORMATION
  Report Type: Spontaneous
  Country: US (occurrence: US)
  Receive Date: 20210820
  Receipt Date: 20210820
  Transmission Date: 20211014
  Serious: No
  Sender: FDA-Public Use
  Company Number: US-CELLTRION INC.-2021US009065

PATIENT

DRUGS (2)
  1. TRUXIMA [Suspect]
     Active Substance: RITUXIMAB-ABBS
     Dosage: NEXT DOSE IS SCHEDULED TO BE GIVEN ON 17 JUL 2021
  2. TRUXIMA [Suspect]
     Active Substance: RITUXIMAB-ABBS
     Indication: LYMPHOMA
     Dosage: UNK
     Dates: start: 20210701

REACTIONS (2)
  - Intercepted product storage error [Unknown]
  - Product temperature excursion issue [Unknown]

NARRATIVE: CASE EVENT DATE: 20210628
